FAERS Safety Report 6296721-9 (Version None)
Quarter: 2009Q3

REPORT INFORMATION
  Report Type: 
  Country: None (occurrence: None)
  Receive Date: 20090804
  Receipt Date: 20090728
  Transmission Date: 20100115
  Serious: Yes (Other)
  Sender: FDA-Public Use
  Company Number: GB-TEVA-203970ISR

PATIENT
  Age: 72 Year

DRUGS (2)
  1. CARBOPLATIN [Suspect]
  2. ETOPOSIDE [Suspect]

REACTIONS (1)
  - ACUTE MYELOID LEUKAEMIA [None]
